FAERS Safety Report 10586813 (Version 1)
Quarter: 2014Q4

REPORT INFORMATION
  Report Type: Spontaneous
  Country: US (occurrence: None)
  Receive Date: 20141114
  Receipt Date: 20141114
  Transmission Date: 20150529
  Serious: Yes (Life-Threatening, Other)
  Sender: FDA-Public Use
  Company Number: None

PATIENT
  Age: 28 Year
  Sex: Male
  Weight: 122.47 kg

DRUGS (1)
  1. VENLAFAXINE HCL [Suspect]
     Active Substance: VENLAFAXINE HYDROCHLORIDE
     Indication: DEPRESSION
     Dosage: 1 PILL ONCE DAILY
     Route: 048
     Dates: start: 20141008, end: 20141030

REACTIONS (12)
  - Gastrointestinal pain [None]
  - Paraesthesia [None]
  - Anxiety [None]
  - Nausea [None]
  - Abdominal pain upper [None]
  - Product substitution issue [None]
  - Confusional state [None]
  - Depression [None]
  - Migraine [None]
  - Dizziness [None]
  - Diarrhoea [None]
  - Product quality issue [None]

NARRATIVE: CASE EVENT DATE: 20141008
